FAERS Safety Report 6173531-4 (Version None)
Quarter: 2009Q2

REPORT INFORMATION
  Report Type: 
  Country: None (occurrence: None)
  Receive Date: 20090430
  Receipt Date: 20090424
  Transmission Date: 20091009
  Serious: Yes (Death, Hospitalization)
  Sender: FDA-Public Use
  Company Number: B0560725A

PATIENT
  Sex: Male

DRUGS (2)
  1. AMOXICILLIN [Suspect]
     Indication: PHARYNGEAL DISORDER
     Dosage: 1G TWICE PER DAY
     Route: 042
     Dates: start: 20081018, end: 20081025
  2. ANTIDIABETIC [Concomitant]
     Indication: DIABETES MELLITUS
     Route: 065

REACTIONS (2)
  - ANAPHYLACTIC SHOCK [None]
  - DEATH [None]
